FAERS Safety Report 4962456-5 (Version None)
Quarter: 2006Q2

REPORT INFORMATION
  Report Type: 
  Country: None (occurrence: None)
  Receive Date: 20060404
  Receipt Date: 20020523
  Transmission Date: 20061013
  Serious: Yes (Hospitalization)
  Sender: FDA-Public Use
  Company Number: DE-AMGEN-02050650

PATIENT
  Sex: Male

DRUGS (8)
  1. ENBREL [Suspect]
     Indication: ARTHRITIS
     Route: 058
     Dates: start: 20001216, end: 20020318
  2. ENBREL [Suspect]
  3. LANTAREL [Suspect]
     Indication: JUVENILE ARTHRITIS
  4. NAPROXEN [Suspect]
     Indication: JUVENILE ARTHRITIS
  5. AZATHIOPRINE [Suspect]
     Indication: JUVENILE ARTHRITIS
  6. AZATHIOPRINE [Concomitant]
  7. METHOTREXATE [Concomitant]
  8. NAPROXEN [Concomitant]

REACTIONS (1)
  - OESOPHAGITIS [None]
